FAERS Safety Report 23310105 (Version 1)
Quarter: 2023Q4

REPORT INFORMATION
  Report Type: Spontaneous
  Country: IT (occurrence: IT)
  Receive Date: 20231218
  Receipt Date: 20231218
  Transmission Date: 20240110
  Serious: Yes (Hospitalization, Other)
  Sender: FDA-Public Use
  Company Number: IT-DSJP-DSE-2023-151910

PATIENT
  Age: 74 Year
  Sex: Female
  Weight: 55 kg

DRUGS (16)
  1. EDOXABAN [Suspect]
     Active Substance: EDOXABAN
     Indication: Product used for unknown indication
     Dosage: 30 MG
     Route: 065
     Dates: start: 202303, end: 20231130
  2. EDOXABAN [Suspect]
     Active Substance: EDOXABAN
     Dosage: 60 MG
     Route: 065
     Dates: start: 20231130
  3. VERAPAMIL [Concomitant]
     Active Substance: VERAPAMIL HYDROCHLORIDE
     Indication: Product used for unknown indication
     Dosage: 1 DF (240 MG+80 MG) (240MG IN THE MORNING + 80MG IN THE EVENING)
     Route: 065
  4. OLMESARTAN [Concomitant]
     Active Substance: OLMESARTAN
     Indication: Product used for unknown indication
     Dosage: 40 MG
     Route: 065
  5. FUROSEMIDE [Concomitant]
     Active Substance: FUROSEMIDE
     Indication: Product used for unknown indication
     Dosage: 1 DF, QOD (25MG-50MG,EVERY OTHER DAY)
     Route: 065
  6. LACIDIPINE [Concomitant]
     Active Substance: LACIDIPINE
     Indication: Product used for unknown indication
     Dosage: 4 MG
     Route: 065
  7. PANTOPRAZOLE [Concomitant]
     Active Substance: PANTOPRAZOLE
     Indication: Product used for unknown indication
     Dosage: 40 MG
     Route: 065
  8. DURLEVATEC [Concomitant]
     Indication: Product used for unknown indication
     Dosage: BUPRENORPHINE TRANSDERMAL PATCH
     Route: 062
  9. FOSTER [Concomitant]
     Active Substance: BECLOMETHASONE\FORMOTEROL
     Indication: Product used for unknown indication
     Dosage: (BECLOMETHASONE/FORMOTEROL FUMARATE POWDER FOR INHALATION)
  10. BEVESPI AEROSPHERE [Concomitant]
     Active Substance: FORMOTEROL FUMARATE\GLYCOPYRROLATE
     Indication: Product used for unknown indication
     Dosage: GLYCOPYRRONIUM BROMIDE/FORMOTEROL FUMARATE AEROSOL
  11. DIOSMIN [Concomitant]
     Active Substance: DIOSMIN
     Indication: Product used for unknown indication
     Dosage: DIOSMIN (FLAVONOIDS)
     Route: 065
  12. KETOPROFEN [Concomitant]
     Active Substance: KETOPROFEN
     Indication: Product used for unknown indication
     Dosage: IT IS NOT CLEAR WHETHER AS NEEDED
     Route: 065
  13. ETORICOXIB [Concomitant]
     Active Substance: ETORICOXIB
     Indication: Product used for unknown indication
     Dosage: IT IS NOT CLEAR WHETHER AS NEEDED
     Route: 065
  14. EZETIMIBE [Concomitant]
     Active Substance: EZETIMIBE
     Indication: Product used for unknown indication
     Dosage: 10 MG
     Route: 065
  15. NIFEREX [ASCORBIC ACID;CYANOCOBALAMIN;FERROUS ASPARTO GLYCINATE;FOLIC [Concomitant]
     Indication: Iron deficiency
     Dosage: 100 MG (IRON)
     Route: 065
  16. VENLAFAXINE [Concomitant]
     Active Substance: VENLAFAXINE HYDROCHLORIDE
     Indication: Product used for unknown indication
     Dosage: 3.75 MG (IT IS UNCLEAR WHETHER SUSPENDED: ON MARCH 9)
     Route: 065

REACTIONS (4)
  - Pulmonary embolism [Unknown]
  - Cardiac failure [Unknown]
  - Acute respiratory failure [Unknown]
  - Off label use [Not Recovered/Not Resolved]

NARRATIVE: CASE EVENT DATE: 20230401
